FAERS Safety Report 8394386-3 (Version None)
Quarter: 2012Q2

REPORT INFORMATION
  Report Type: 
  Country: None (occurrence: None)
  Receive Date: 20120525
  Receipt Date: 20120525
  Transmission Date: 20120825
  Serious: Yes (Other)
  Sender: FDA-Public Use
  Company Number: None

PATIENT
  Age: 30 Year
  Sex: Male
  Weight: 80.7403 kg

DRUGS (2)
  1. CREST PRO-HEALTH TOOTHPASTE CLINICAL GUM PROTECTION PROCTER + GAMBLE [Suspect]
     Indication: DENTAL DISORDER PROPHYLAXIS
     Dosage: 1 TOOTHBRUSH FULL TWICE DAILY PO
     Route: 048
  2. CREST PRO-HEALTH MOUTHWASH CLINICAL PROCTER + GAMBLE [Suspect]
     Indication: DENTAL DISORDER PROPHYLAXIS
     Dosage: 1 OUNCE TWICE DAILY PO
     Route: 048
     Dates: start: 20120501, end: 20120522

REACTIONS (2)
  - ORAL MUCOSAL EXFOLIATION [None]
  - TONGUE DISCOLOURATION [None]
